FAERS Safety Report 5091164-8 (Version None)
Quarter: 2006Q3

REPORT INFORMATION
  Report Type: 
  Country: None (occurrence: None)
  Receive Date: 20060727
  Receipt Date: 20060518
  Transmission Date: 20061208
  Serious: Yes (Other)
  Sender: FDA-Public Use
  Company Number: 2006039656

PATIENT
  Age: 73 Year
  Sex: Female
  Weight: 95.2554 kg

DRUGS (7)
  1. LYRICA [Suspect]
     Indication: DIABETIC NEUROPATHY
     Dosage: 150 MG (50 MG,3 IN 1 D)
     Dates: start: 20060316, end: 20060301
  2. SYNTHROID [Concomitant]
  3. VALSARTAN [Concomitant]
  4. ZOCOR [Concomitant]
  5. FUROSEMIDE [Concomitant]
  6. SPIRONOLACTONE [Concomitant]
  7. VITAMINS (VITAMINS) [Concomitant]

REACTIONS (3)
  - DIZZINESS [None]
  - DRUG INEFFECTIVE [None]
  - HYPOAESTHESIA [None]
